FAERS Safety Report 20514483 (Version 1)
Quarter: 2022Q1

REPORT INFORMATION
  Report Type: Spontaneous
  Country: FR (occurrence: FR)
  Receive Date: 20220224
  Receipt Date: 20220224
  Transmission Date: 20220423
  Serious: Yes (Hospitalization)
  Sender: FDA-Public Use
  Company Number: None

PATIENT
  Age: 66 Year
  Sex: Male
  Weight: 73 kg

DRUGS (7)
  1. ATORVASTATIN [Suspect]
     Active Substance: ATORVASTATIN
     Indication: Prophylaxis
     Dosage: 40 MG, QD
     Route: 048
     Dates: start: 20220114, end: 20220201
  2. ZOPICLONE [Suspect]
     Active Substance: ZOPICLONE
     Indication: Sleep disorder
     Dosage: 1 DOSAGE FORM, QD
     Route: 048
     Dates: start: 20211227, end: 20220201
  3. LANSOPRAZOLE [Suspect]
     Active Substance: LANSOPRAZOLE
     Indication: Abdominal pain upper
     Dosage: 15 MG, QD
     Route: 048
     Dates: start: 20211117, end: 20220201
  4. HERBALS\SAW PALMETTO [Suspect]
     Active Substance: HERBALS\SAW PALMETTO
     Indication: Prostatic disorder
     Dosage: 1 DOSAGE FORM, QD
     Route: 048
     Dates: start: 20211220, end: 20220201
  5. ALFUZOSIN [Suspect]
     Active Substance: ALFUZOSIN
     Indication: Prostatic disorder
     Dosage: 10 MG, QD
     Route: 048
     Dates: start: 20211220, end: 20220203
  6. MOVICOL [Suspect]
     Active Substance: POLYETHYLENE GLYCOL 3350\POTASSIUM CHLORIDE\SODIUM BICARBONATE\SODIUM CHLORIDE
     Indication: Constipation
     Dosage: 1 DOSAGE FORM, QD
     Route: 048
     Dates: start: 20211126, end: 20220201
  7. PREGABALIN [Suspect]
     Active Substance: PREGABALIN
     Indication: Neuralgia
     Dosage: 1 DOSAGE FORM, QD
     Route: 048
     Dates: start: 20211113, end: 20220203

REACTIONS (1)
  - Agranulocytosis [Recovered/Resolved]

NARRATIVE: CASE EVENT DATE: 20220201
